FAERS Safety Report 24193221 (Version 1)
Quarter: 2024Q3

REPORT INFORMATION
  Report Type: Spontaneous
  Country: US (occurrence: US)
  Receive Date: 20240809
  Receipt Date: 20240809
  Transmission Date: 20241017
  Serious: Yes (Hospitalization, Other)
  Sender: MACLEODS
  Company Number: US-MACLEODS PHARMA-MAC2024048658

PATIENT

DRUGS (4)
  1. ZIPRASIDONE [Suspect]
     Active Substance: ZIPRASIDONE
     Indication: Psychiatric symptom
     Dosage: MODERATE DOSE, 2 WEEKS, BID
     Route: 030
  2. ACETAMINOPHEN [Concomitant]
     Active Substance: ACETAMINOPHEN
     Indication: Product used for unknown indication
     Route: 065
  3. CLONAZEPAM [Concomitant]
     Active Substance: CLONAZEPAM
     Indication: Bipolar disorder
     Route: 065
  4. LITHIUM [Concomitant]
     Active Substance: LITHIUM
     Indication: Bipolar disorder
     Route: 065

REACTIONS (4)
  - Pneumonia aspiration [Recovered/Resolved]
  - Neuroleptic malignant syndrome [Recovered/Resolved]
  - Urinary incontinence [Recovered/Resolved]
  - Urinary retention [Recovered/Resolved]
